FAERS Safety Report 21296926 (Version 3)
Quarter: 2022Q4

REPORT INFORMATION
  Report Type: Spontaneous
  Country: US (occurrence: US)
  Receive Date: 20220906
  Receipt Date: 20221118
  Transmission Date: 20230113
  Serious: No
  Sender: FDA-Public Use
  Company Number: US-BRISTOL-MYERS SQUIBB COMPANY-2022-067263

PATIENT
  Age: 85 Year
  Sex: Female

DRUGS (4)
  1. REVLIMID [Suspect]
     Active Substance: LENALIDOMIDE
     Indication: Myelodysplastic syndrome
     Dosage: FREQ - TAKE 1 CAPSULE BY MOUTH EVERYDAY FOR 7 DAYS THEN 7 DAYS OFF,THEN REPEAT.
     Route: 048
  2. REVLIMID [Suspect]
     Active Substance: LENALIDOMIDE
     Indication: Anaemia
     Dosage: FREQUENCY : TAKE 1 CAPSULE BY MOUTH DAILY FOR 7 DAYS, THEN 7 DAYS OFF FOLLOWED BY 1 CAPSULE BY MOUTH
     Route: 048
     Dates: start: 20220204
  3. REVLIMID [Suspect]
     Active Substance: LENALIDOMIDE
     Indication: Plasma cell myeloma
     Dosage: FREQUENCY : TAKE 1 CAPSULE BY MOUTH DAILY FOR 7 DAYS, THEN 7 DAYS OFF FOLLOWED BY 1 CAPSULE BY MOUTH
     Route: 048
     Dates: start: 20220204
  4. REVLIMID [Suspect]
     Active Substance: LENALIDOMIDE
     Route: 048

REACTIONS (5)
  - Cardiovascular disorder [Not Recovered/Not Resolved]
  - Constipation [Unknown]
  - Eye disorder [Unknown]
  - Intentional product use issue [Unknown]
  - Skin discolouration [Unknown]
